FAERS Safety Report 8433012-1 (Version None)
Quarter: 2012Q2

REPORT INFORMATION
  Report Type: 
  Country: None (occurrence: None)
  Receive Date: 20120613
  Receipt Date: 20120605
  Transmission Date: 20120825
  Serious: Yes (Hospitalization, Other)
  Sender: FDA-Public Use
  Company Number: CA-ABBOTT-12P-028-0943158-00

PATIENT
  Sex: Male
  Weight: 60 kg

DRUGS (14)
  1. APO FUROSEMIDE [Concomitant]
     Indication: PRODUCT USED FOR UNKNOWN INDICATION
     Dosage: ONCE DAILY, 40 MG
     Route: 048
  2. NOVOGESIC [Concomitant]
     Indication: PRODUCT USED FOR UNKNOWN INDICATION
     Dosage: 325 MG CAPLETS, 2 TABS IF NEEDED EVERY 4-6 HRS MAX 4 TIM
     Route: 048
  3. METRONIDAZOLE [Concomitant]
     Indication: PRODUCT USED FOR UNKNOWN INDICATION
     Dosage: TWICE DAILY, 250 MG
  4. JAMP FERROUS SULFATE [Concomitant]
     Indication: PRODUCT USED FOR UNKNOWN INDICATION
     Dosage: 300 MG
     Route: 048
  5. ISENTRESS [Concomitant]
     Indication: PRODUCT USED FOR UNKNOWN INDICATION
     Dosage: TWICE DAILY, 400 MG
     Route: 048
  6. APO NADOL [Concomitant]
     Indication: PRODUCT USED FOR UNKNOWN INDICATION
     Dosage: 1/2 TAB, ONCE DAILY, 40 MG
  7. LOPERAMIDE TEVA [Concomitant]
     Indication: DIARRHOEA
     Dosage: 2 MG, 2 TABS PLUS 1 TAB AFTER DIARRHEA MAX 8 T
  8. DOMPERIDONE RATIO [Concomitant]
     Indication: PRODUCT USED FOR UNKNOWN INDICATION
     Route: 048
  9. EURO FOLIC [Concomitant]
     Indication: PRODUCT USED FOR UNKNOWN INDICATION
     Dosage: ONCE DAILY, 5 MG
     Route: 048
  10. NOVOLIN GE NPH [Concomitant]
     Indication: PRODUCT USED FOR UNKNOWN INDICATION
     Dosage: 10 UNITS 100 UI/ML 3 PENS
     Route: 050
  11. PHOSPHATE NOVARTIS [Concomitant]
     Indication: PRODUCT USED FOR UNKNOWN INDICATION
     Dosage: 1936 MG EFFERVESCENT, 1 TAB IN WATER
  12. NEXIUM [Concomitant]
     Indication: PRODUCT USED FOR UNKNOWN INDICATION
     Dosage: 2 IN 1 D, 40 MG
     Route: 048
  13. KALETRA [Suspect]
     Indication: PRODUCT USED FOR UNKNOWN INDICATION
     Dosage: 200 MG / 50 MG, DAILY DOSE: 600/150MG, 1 TAB AM, 2  TABD PM
     Route: 048
  14. PMS CALCIUM [Concomitant]
     Indication: PRODUCT USED FOR UNKNOWN INDICATION
     Dosage: TWICE DAILY, 500 MG
     Route: 048

REACTIONS (4)
  - DIABETES MELLITUS [None]
  - WEIGHT DECREASED [None]
  - HEPATIC CIRRHOSIS [None]
  - ABDOMINAL PAIN [None]
